FAERS Safety Report 6485914-3 (Version None)
Quarter: 2009Q4

REPORT INFORMATION
  Report Type: 
  Country: None (occurrence: None)
  Receive Date: 20091204
  Receipt Date: 20091125
  Transmission Date: 20100525
  Serious: No
  Sender: FDA-Public Use
  Company Number: 20097582

PATIENT
  Sex: Female

DRUGS (1)
  1. LIORESAL [Suspect]
     Indication: MUSCLE SPASTICITY
     Dosage: 340.2 MCG, DAILY, INTRATHECAL
     Route: 037

REACTIONS (7)
  - APHASIA [None]
  - ASTHENIA [None]
  - CONSCIOUSNESS FLUCTUATING [None]
  - NAUSEA [None]
  - OVERDOSE [None]
  - PUPILLARY REFLEX IMPAIRED [None]
  - SOMNOLENCE [None]
